FAERS Safety Report 6490099-3 (Version None)
Quarter: 2009Q4

REPORT INFORMATION
  Report Type: 
  Country: None (occurrence: None)
  Receive Date: 20091211
  Receipt Date: 20090608
  Transmission Date: 20100525
  Serious: No
  Sender: FDA-Public Use
  Company Number: A0771165A

PATIENT
  Age: 66 Year
  Sex: Female

DRUGS (9)
  1. FLOVENT [Suspect]
     Indication: PANIC ATTACK
     Route: 055
     Dates: start: 20090224
  2. COMBIVENT [Concomitant]
  3. PREMARIN [Concomitant]
  4. VITAMIN D [Concomitant]
  5. MULTIPLE VITAMINS [Concomitant]
  6. VITAMIN E [Concomitant]
  7. TYLENOL (CAPLET) [Concomitant]
  8. UNKNOWN [Concomitant]
  9. BUPROPION HCL [Concomitant]

REACTIONS (5)
  - DYSPNOEA [None]
  - OROPHARYNGEAL BLISTERING [None]
  - OROPHARYNGEAL PAIN [None]
  - PARANASAL SINUS HYPERSECRETION [None]
  - PRODUCT QUALITY ISSUE [None]
